FAERS Safety Report 14797416 (Version 1)
Quarter: 2018Q2

REPORT INFORMATION
  Report Type: Spontaneous
  Country: US (occurrence: US)
  Receive Date: 20180424
  Receipt Date: 20180424
  Transmission Date: 20180711
  Serious: Yes (Other)
  Sender: FDA-Public Use
  Company Number: US-TEVA-2018-US-844092

PATIENT
  Age: 56 Year
  Sex: Female

DRUGS (5)
  1. BUPIVACAINE. [Concomitant]
     Active Substance: BUPIVACAINE
     Indication: PAIN MANAGEMENT
     Dosage: A CONTINUOUS INFUSION AT A RATE OF 8ML/HOUR FOLLOWED BY 10ML/HOUR.
     Route: 008
  2. HYDROMORPHONE [Suspect]
     Active Substance: HYDROMORPHONE
     Indication: PAIN MANAGEMENT
     Dosage: A CONTINUOUS INFUSION OF 10MCG/ML AT A RATE OF 8ML/HOUR FOLLOWED BY 10ML/HOUR.
     Route: 008
  3. BUPIVACAINE. [Concomitant]
     Active Substance: BUPIVACAINE
     Dosage: A CONTINUOUS INFUSION AT A RATE OF 10ML/HOUR.
     Route: 008
  4. HYDROMORPHONE [Suspect]
     Active Substance: HYDROMORPHONE
     Dosage: A CONTINUOUS INFUSION OF 10MCG/ML AT A RATE OF 10ML/HOUR.
     Route: 008
  5. BUPIVACAINE. [Concomitant]
     Active Substance: BUPIVACAINE
     Route: 065

REACTIONS (1)
  - Nystagmus [Recovered/Resolved]
